FAERS Safety Report 7297472-4 (Version None)
Quarter: 2011Q1

REPORT INFORMATION
  Report Type: 
  Country: None (occurrence: None)
  Receive Date: 20110216
  Receipt Date: 20110209
  Transmission Date: 20110831
  Serious: Yes (Hospitalization)
  Sender: FDA-Public Use
  Company Number: US-B.I. PHARMACEUTICALS,INC./RIDGEFIELD-2010-BP-13650BP

PATIENT
  Sex: Male
  Weight: 86.64 kg

DRUGS (11)
  1. COLCHICINE [Concomitant]
     Dosage: 0.6 MG
     Route: 048
  2. PRADAXA [Suspect]
     Indication: CEREBROVASCULAR ACCIDENT PROPHYLAXIS
     Dosage: 300 MG
     Route: 048
     Dates: start: 20101119, end: 20101130
  3. PRADAXA [Suspect]
     Indication: ATRIAL FIBRILLATION
  4. NITROLINGUAL [Concomitant]
  5. POTASSIUM CHLORIDE [Concomitant]
     Dosage: 20 MEQ
     Route: 048
  6. SIMVASTATIN [Concomitant]
     Dosage: 20 MG
     Route: 048
  7. COREG [Concomitant]
     Dosage: 50 MG
     Route: 048
  8. FISH OIL [Concomitant]
     Dosage: 3000 MG
  9. LASIX [Concomitant]
     Dosage: 80 MG
     Route: 048
  10. ALLOPURINOL [Concomitant]
     Dosage: 300 MG
     Route: 048
  11. ASPIRIN [Concomitant]
     Route: 048

REACTIONS (16)
  - VOMITING [None]
  - RENAL FAILURE ACUTE [None]
  - GAIT DISTURBANCE [None]
  - BLOOD POTASSIUM ABNORMAL [None]
  - ELECTROCARDIOGRAM QRS COMPLEX PROLONGED [None]
  - EATING DISORDER [None]
  - HEART RATE ABNORMAL [None]
  - GINGIVAL BLEEDING [None]
  - ASTHENIA [None]
  - THROMBOCYTOPENIA [None]
  - BLOOD UREA ABNORMAL [None]
  - OVERSENSING [None]
  - DECREASED APPETITE [None]
  - BLOOD PRESSURE ABNORMAL [None]
  - BLOOD SODIUM DECREASED [None]
  - NAUSEA [None]
